FAERS Safety Report 4591852-3 (Version None)
Quarter: 2005Q1

REPORT INFORMATION
  Report Type: 
  Country: None (occurrence: None)
  Receive Date: 20050222
  Receipt Date: 20050107
  Transmission Date: 20050727
  Serious: Yes (Hospitalization, Other)
  Sender: FDA-Public Use
  Company Number: 2004106757

PATIENT
  Age: 21 Year
  Sex: Female
  Weight: 104.3273 kg

DRUGS (2)
  1. BEXTRA [Suspect]
     Indication: HEADACHE
     Dosage: 10 MG (10 MG, 1 IN 1 D), ORAL
     Route: 048
     Dates: start: 20040430, end: 20040503
  2. NORMENSAL (ETHINYLESTRADIOL, NORETHISTERONE) [Suspect]
     Indication: CONTRACEPTION
     Dosage: (1 IN 1 D), ORAL
     Route: 048
     Dates: start: 20040416, end: 20040503

REACTIONS (5)
  - BACK INJURY [None]
  - CEREBRAL THROMBOSIS [None]
  - CONVULSION [None]
  - DRUG INTERACTION [None]
  - PROTEIN S DEFICIENCY [None]
